FAERS Safety Report 8965406 (Version 1)
Quarter: 2012Q4

REPORT INFORMATION
  Report Type: 
  Country: AU (occurrence: AU)
  Receive Date: 20121214
  Receipt Date: 20121214
  Transmission Date: 20130627
  Serious: Yes (Death, Other)
  Sender: FDA-Public Use
  Company Number: PHHY2012AU115107

PATIENT

DRUGS (3)
  1. OXALIPLATIN [Suspect]
     Indication: METASTASES TO LIVER
     Dosage: Six cycles
     Dates: start: 200810, end: 200812
  2. 5-FLUOROURACIL [Suspect]
     Indication: METASTASES TO LIVER
     Dosage: Six cycles
     Dates: start: 200810, end: 200812
  3. LEUCOVORIN CALCIUM [Suspect]
     Indication: METASTASES TO LIVER
     Dosage: Six cycles
     Dates: start: 200810, end: 200812

REACTIONS (5)
  - Respiratory failure [Fatal]
  - Interstitial lung disease [Unknown]
  - Metastases to liver [Unknown]
  - Dyspnoea [Unknown]
  - Haemoptysis [Unknown]
